FAERS Safety Report 21509645 (Version 1)
Quarter: 2022Q4

REPORT INFORMATION
  Report Type: Spontaneous
  Country: US (occurrence: US)
  Receive Date: 20221026
  Receipt Date: 20221026
  Transmission Date: 20230112
  Serious: No
  Sender: FDA-Public Use
  Company Number: US-MYLANLABS-2022M1112376

PATIENT
  Sex: Male
  Weight: 79.38 kg

DRUGS (1)
  1. FENTANYL TRANSDERMAL SYSTEM [Suspect]
     Active Substance: FENTANYL
     Indication: Back pain
     Dosage: 62.5 MICROGRAM, QH
     Route: 062
     Dates: start: 20221002

REACTIONS (4)
  - Withdrawal syndrome [Unknown]
  - Pain [Unknown]
  - Restless legs syndrome [Unknown]
  - Influenza [Unknown]
